FAERS Safety Report 19121555 (Version 1)
Quarter: 2021Q2

REPORT INFORMATION
  Report Type: Spontaneous
  Country: US (occurrence: US)
  Receive Date: 20210412
  Receipt Date: 20210412
  Transmission Date: 20210717
  Serious: Yes (Life-Threatening, Hospitalization)
  Sender: FDA-Public Use
  Company Number: None

PATIENT
  Age: 58 Year
  Sex: Female
  Weight: 63.5 kg

DRUGS (7)
  1. MAGNESIUM [Concomitant]
     Active Substance: MAGNESIUM
  2. RESTASIS [Concomitant]
     Active Substance: CYCLOSPORINE
  3. METOPROLOL SUCCINATE ER 25MG TB24 [Suspect]
     Active Substance: METOPROLOL SUCCINATE
     Indication: PALPITATIONS
     Dosage: ?          QUANTITY:25 MG MILLIGRAM(S);OTHER FREQUENCY:1/2 TABLET DAILY ;?
     Route: 048
     Dates: start: 20191212, end: 20191215
  4. VEGAN OMEGA 3 [Concomitant]
  5. AHI FLOWER OIL [Concomitant]
  6. APPLE CIDER VINEGAR GUMMIES [Concomitant]
  7. MULTI VITAMIN [Concomitant]
     Active Substance: VITAMINS

REACTIONS (28)
  - Balance disorder [None]
  - Morbid thoughts [None]
  - Hypertension [None]
  - Confusional state [None]
  - Pulmonary sarcoidosis [None]
  - Cardiac disorder [None]
  - Dizziness [None]
  - Paranasal sinus discomfort [None]
  - Anxiety [None]
  - Suicidal ideation [None]
  - Depression [None]
  - Supraventricular tachycardia [None]
  - Malaise [None]
  - Abnormal dreams [None]
  - Emotional distress [None]
  - Dysphonia [None]
  - Sleep disorder [None]
  - Granuloma [None]
  - Nightmare [None]
  - Asthenia [None]
  - Fatigue [None]
  - Amnesia [None]
  - Hypersensitivity [None]
  - Dyspnoea exertional [None]
  - Palpitations [None]
  - Dysarthria [None]
  - Chest discomfort [None]
  - Arrhythmia [None]

NARRATIVE: CASE EVENT DATE: 20191213
